FAERS Safety Report 7517439-8 (Version None)
Quarter: 2011Q2

REPORT INFORMATION
  Report Type: 
  Country: None (occurrence: None)
  Receive Date: 20110601
  Receipt Date: 20110525
  Transmission Date: 20111010
  Serious: Yes (Other)
  Sender: FDA-Public Use
  Company Number: GB-PFIZER INC-2011116404

PATIENT
  Age: 8 Year
  Sex: Female
  Weight: 20.7 kg

DRUGS (5)
  1. IBUPROFEN [Suspect]
     Dosage: UNK
     Route: 048
     Dates: start: 20110513
  2. PHENOXYMETHYLPENICILLIN [Concomitant]
     Dosage: UNK
     Dates: start: 20110303
  3. AMOXICILLIN [Concomitant]
     Dosage: UNK
     Dates: start: 20110513
  4. CHLORAMPHENICOL [Concomitant]
     Dosage: UNK
     Dates: start: 20110303
  5. PHENOXYMETHYLPENICILLIN [Concomitant]
     Dosage: UNK
     Dates: start: 20110316

REACTIONS (1)
  - SWELLING FACE [None]
